FAERS Safety Report 22028724 (Version 1)
Quarter: 2023Q1

REPORT INFORMATION
  Report Type: Spontaneous
  Country: US (occurrence: None)
  Receive Date: 20230220
  Receipt Date: 20230220
  Transmission Date: 20230418
  Serious: Yes (Death)
  Sender: FDA-Public Use
  Company Number: None

PATIENT
  Age: 84 Year
  Sex: Female

DRUGS (1)
  1. RETACRIT [Suspect]
     Active Substance: EPOETIN ALFA-EPBX
     Indication: Product used for unknown indication
     Dosage: FREQUENCY : WEEKLY;?
     Route: 058
     Dates: start: 20221213, end: 20230217

REACTIONS (1)
  - Death [None]

NARRATIVE: CASE EVENT DATE: 20230217
